FAERS Safety Report 25825483 (Version 1)
Quarter: 2025Q3

REPORT INFORMATION
  Report Type: Spontaneous
  Country: US (occurrence: US)
  Receive Date: 20250919
  Receipt Date: 20250919
  Transmission Date: 20251021
  Serious: No
  Sender: APELLIS PHARMACEUTICALS
  Company Number: US-APELLIS-2025-APL-0001763

PATIENT
  Weight: 83.915 kg

DRUGS (8)
  1. SYFOVRE [Suspect]
     Active Substance: PEGCETACOPLAN
     Indication: Product used for unknown indication
     Dosage: INJECT15MG(0.1ML) INTRAVITREALLY, LEFT EYE EVERY 4 WEEKS
     Route: 031
  2. FAMOTIDINE [Concomitant]
     Active Substance: FAMOTIDINE
     Indication: Product used for unknown indication
  3. PROTONIX [Concomitant]
     Active Substance: PANTOPRAZOLE SODIUM
     Indication: Product used for unknown indication
  4. VITAMIN D2 [Concomitant]
     Active Substance: ERGOCALCIFEROL
     Indication: Product used for unknown indication
  5. ATORVASTATIN CALCIUM [Concomitant]
     Active Substance: ATORVASTATIN CALCIUM
     Indication: Product used for unknown indication
  6. TELMISARTAN [Concomitant]
     Active Substance: TELMISARTAN
     Indication: Product used for unknown indication
  7. FISH OIL [Concomitant]
     Active Substance: FISH OIL
     Indication: Product used for unknown indication
  8. Ocuvite + lutein [Concomitant]
     Indication: Product used for unknown indication

REACTIONS (1)
  - Condition aggravated [Unknown]
